FAERS Safety Report 5670599-6 (Version None)
Quarter: 2008Q1

REPORT INFORMATION
  Report Type: 
  Country: None (occurrence: None)
  Receive Date: 20080318
  Receipt Date: 20080312
  Transmission Date: 20080703
  Serious: Yes (Other)
  Sender: FDA-Public Use
  Company Number: US-JNJFOC-20080302317

PATIENT
  Sex: Female
  Weight: 63.5 kg

DRUGS (15)
  1. DURAGESIC-100 [Suspect]
     Route: 062
  2. DURAGESIC-100 [Suspect]
     Indication: MIGRAINE
     Route: 062
  3. DURAGESIC-100 [Suspect]
     Indication: BACK PAIN
     Route: 062
  4. LISINOPRIL [Concomitant]
     Indication: HYPERTENSION
     Route: 048
  5. CARVEDILOL [Concomitant]
     Indication: CARDIAC DISORDER
     Route: 048
  6. POTASSIUM CHLORIDE [Concomitant]
     Indication: MINERAL SUPPLEMENTATION
     Route: 048
  7. ATORVASTATIN CALCIUM [Concomitant]
     Indication: BLOOD CHOLESTEROL
     Route: 048
  8. HYDROCHLOROTHIAZIDE [Concomitant]
     Indication: FLUID RETENTION
     Route: 048
  9. CARISOPRODOL [Concomitant]
     Indication: MUSCLE RELAXANT THERAPY
     Route: 048
  10. PROMETHAZINE [Concomitant]
     Indication: VOMITING
     Route: 048
  11. PROMETHAZINE [Concomitant]
     Indication: NAUSEA
     Route: 048
  12. ALPRAZOLAM [Concomitant]
     Indication: VOMITING
     Route: 048
  13. HYDROXYZINE [Concomitant]
     Indication: PRURITUS
     Route: 048
  14. VICODIN [Concomitant]
     Indication: BREAKTHROUGH PAIN
     Route: 048
  15. TEMAZEPAM [Concomitant]
     Indication: SLEEP DISORDER
     Route: 048

REACTIONS (9)
  - ASTHENIA [None]
  - DRUG EFFECT DECREASED [None]
  - GASTRIC DISORDER [None]
  - HOT FLUSH [None]
  - HYPERHIDROSIS [None]
  - HYPOTHYROIDISM [None]
  - NAUSEA [None]
  - OFF LABEL USE [None]
  - TREMOR [None]
